FAERS Safety Report 10597293 (Version 1)
Quarter: 2014Q4

REPORT INFORMATION
  Report Type: Spontaneous
  Country: US (occurrence: US)
  Receive Date: 20141121
  Receipt Date: 20141121
  Transmission Date: 20150529
  Serious: Yes (Hospitalization)
  Sender: FDA-Public Use
  Company Number: US-BEH-2014046419

PATIENT
  Sex: Female
  Weight: 134 kg

DRUGS (27)
  1. ACETAMINOPHEN. [Concomitant]
     Active Substance: ACETAMINOPHEN
  2. RITUXAN [Concomitant]
     Active Substance: RITUXIMAB
  3. MIRAPEX [Concomitant]
     Active Substance: PRAMIPEXOLE DIHYDROCHLORIDE
  4. PRIVIGEN [Suspect]
     Active Substance: HUMAN IMMUNOGLOBULIN G
     Indication: IMMUNODEFICIENCY COMMON VARIABLE
     Route: 042
  5. SOMA [Concomitant]
     Active Substance: CARISOPRODOL
  6. DURAGESIC [Concomitant]
     Active Substance: FENTANYL
  7. ADVAIR HFA [Concomitant]
     Active Substance: FLUTICASONE PROPIONATE\SALMETEROL XINAFOATE
  8. TOPAMAX [Concomitant]
     Active Substance: TOPIRAMATE
  9. SODIUM CHLORIDE. [Concomitant]
     Active Substance: SODIUM CHLORIDE
  10. DICYCLOMINE [Concomitant]
     Active Substance: DICYCLOMINE HYDROCHLORIDE
  11. OXYGEN. [Concomitant]
     Active Substance: OXYGEN
  12. PREDNISONE. [Concomitant]
     Active Substance: PREDNISONE
  13. TOPROL XL [Concomitant]
     Active Substance: METOPROLOL SUCCINATE
  14. ZOFRAN [Concomitant]
     Active Substance: ONDANSETRON HYDROCHLORIDE
  15. ALL OTHER THERAPEUTIC PRODUCTS [Concomitant]
     Active Substance: UNSPECIFIED INGREDIENT
  16. DILAUDID [Concomitant]
     Active Substance: HYDROMORPHONE HYDROCHLORIDE
  17. DUONEB [Concomitant]
     Active Substance: ALBUTEROL SULFATE\IPRATROPIUM BROMIDE
  18. METHOTREXATE [Concomitant]
     Active Substance: METHOTREXATE
  19. PROMETHAZINE [Concomitant]
     Active Substance: PROMETHAZINE\PROMETHAZINE HYDROCHLORIDE
  20. HEPARIN [Concomitant]
     Active Substance: HEPARIN SODIUM
  21. AMBIEN [Concomitant]
     Active Substance: ZOLPIDEM TARTRATE
  22. DIPHENHYDRAMINE [Concomitant]
     Active Substance: DIPHENHYDRAMINE
  23. KLONOPIN [Concomitant]
     Active Substance: CLONAZEPAM
  24. EPIPEN [Concomitant]
     Active Substance: EPINEPHRINE
  25. LMX [Concomitant]
     Active Substance: LIDOCAINE
  26. PROTONIX [Concomitant]
     Active Substance: PANTOPRAZOLE SODIUM
  27. ZOLOFT [Concomitant]
     Active Substance: SERTRALINE HYDROCHLORIDE

REACTIONS (1)
  - Cholecystectomy [Unknown]
